FAERS Safety Report 13784496 (Version 4)
Quarter: 2018Q1

REPORT INFORMATION
  Report Type: Spontaneous
  Country: US (occurrence: US)
  Receive Date: 20170724
  Receipt Date: 20180130
  Transmission Date: 20180508
  Serious: Yes (Other)
  Sender: FDA-Public Use
  Company Number: US-IMPAX LABORATORIES, INC-2017-IPXL-01175

PATIENT
  Sex: Male

DRUGS (3)
  1. RYTARY [Suspect]
     Active Substance: CARBIDOPA\LEVODOPA
     Indication: PARKINSON^S DISEASE
     Dosage: 61.25/245 MG, FOUR CAPSULES THREE TIMES A DAY
     Route: 048
     Dates: start: 201504, end: 201605
  2. RYTARY [Suspect]
     Active Substance: CARBIDOPA\LEVODOPA
     Dosage: 23.75/95 MG, 3 CAPSULES, 4 TIMES DAILY
     Route: 048
  3. RYTARY [Suspect]
     Active Substance: CARBIDOPA\LEVODOPA
     Dosage: 61.25/245 MG, THREE CAPSULES FOUR TIMES A DAY
     Route: 048
     Dates: start: 20170419

REACTIONS (5)
  - Dementia [Unknown]
  - Prescribed overdose [Unknown]
  - Anger [Recovering/Resolving]
  - Parkinson^s disease [Unknown]
  - Hallucination [Recovering/Resolving]
